FAERS Safety Report 23256797 (Version 1)
Quarter: 2023Q4

REPORT INFORMATION
  Report Type: Spontaneous
  Country: US (occurrence: US)
  Receive Date: 20231204
  Receipt Date: 20231204
  Transmission Date: 20240109
  Serious: No
  Sender: FDA-Public Use
  Company Number: US-ALKEM LABORATORIES LIMITED-US-ALKEM-2023-13938

PATIENT
  Age: 34 Year
  Sex: Male

DRUGS (4)
  1. VANCOMYCIN [Suspect]
     Active Substance: VANCOMYCIN
     Indication: Staphylococcal infection
     Dosage: 100 MILLIGRAM
     Route: 014
  2. VANCOMYCIN [Suspect]
     Active Substance: VANCOMYCIN
     Indication: Arthritis infective
     Dosage: 400 MILLIGRAM, BID
     Route: 014
  3. CEFAZOLIN [Concomitant]
     Active Substance: CEFAZOLIN
     Indication: Staphylococcal infection
     Dosage: UNK
     Route: 042
  4. CEFAZOLIN [Concomitant]
     Active Substance: CEFAZOLIN
     Indication: Arthritis infective

REACTIONS (1)
  - Drug level increased [Unknown]
